FAERS Safety Report 7582581-2 (Version None)
Quarter: 2011Q2

REPORT INFORMATION
  Report Type: 
  Country: None (occurrence: None)
  Receive Date: 20110630
  Receipt Date: 20110625
  Transmission Date: 20111010
  Serious: Yes (Death, Hospitalization, Other)
  Sender: FDA-Public Use
  Company Number: US-ASTELLAS-2011US001571

PATIENT
  Sex: Male
  Weight: 91 kg

DRUGS (25)
  1. PROGRAF [Suspect]
     Indication: HEART TRANSPLANT
     Dosage: 3 MG AM, 2.5 MG PM, UID/QD
     Route: 065
     Dates: start: 20100721
  2. AZITHROMYCIN [Concomitant]
     Indication: ANTIBIOTIC THERAPY
     Dosage: 500 MG, UID/QD
     Route: 048
  3. ETHAMBUTOL HYDROCHLORIDE [Concomitant]
     Indication: PRODUCT USED FOR UNKNOWN INDICATION
     Dosage: 800 MG, UID/QD
     Route: 048
  4. VITAMIN D [Concomitant]
     Indication: PRODUCT USED FOR UNKNOWN INDICATION
     Dosage: 1000 U, UID/QD
     Route: 065
  5. PRILOSEC [Concomitant]
     Indication: GASTRIC DISORDER
     Dosage: 20 MG, UID/QD
     Route: 065
  6. VALIUM [Concomitant]
     Indication: PRODUCT USED FOR UNKNOWN INDICATION
     Dosage: 10 MG, BID
     Route: 048
  7. PROGRAF [Suspect]
     Dosage: 2 MG, UNKNOWN/D
     Route: 048
  8. HYDROCORTISONE [Concomitant]
     Indication: PRODUCT USED FOR UNKNOWN INDICATION
     Dosage: 15 MG AM, 5 MG PM, UID/QD
     Route: 065
  9. INSULIN [Concomitant]
     Indication: PRODUCT USED FOR UNKNOWN INDICATION
     Dosage: 10 U BID, 18 U AM
     Route: 065
  10. VALCYTE [Concomitant]
     Indication: PRODUCT USED FOR UNKNOWN INDICATION
     Dosage: 450 DF, WEEKLY
     Route: 065
  11. FLEXERIL [Concomitant]
     Indication: MUSCLE RELAXANT THERAPY
     Dosage: 10 MG, BID
     Route: 048
  12. LEVAQUIN [Concomitant]
     Indication: PRODUCT USED FOR UNKNOWN INDICATION
     Dosage: 1000 MG, QOD
     Route: 065
  13. VFEND [Concomitant]
     Indication: PRODUCT USED FOR UNKNOWN INDICATION
     Dosage: 400 UNK, BID
     Route: 048
  14. CORTEF [Concomitant]
     Indication: PRODUCT USED FOR UNKNOWN INDICATION
     Dosage: 15 MG, UNKNOWN/D
     Route: 048
  15. GABAPENTIN [Concomitant]
     Indication: PRODUCT USED FOR UNKNOWN INDICATION
     Dosage: 100 MG, UNKNOWN/D
     Route: 048
  16. LIDODERM [Concomitant]
     Indication: PRODUCT USED FOR UNKNOWN INDICATION
     Dosage: 5 %, Q12 HOURS
     Route: 062
  17. PRAVASTATIN SODIUM [Concomitant]
     Indication: PRODUCT USED FOR UNKNOWN INDICATION
     Dosage: 40 MG, UID/QD
     Route: 048
  18. REMERON [Concomitant]
     Indication: PRODUCT USED FOR UNKNOWN INDICATION
     Dosage: 7.5 MG, UID/QD
     Route: 065
  19. ASPIRIN [Concomitant]
     Indication: PRODUCT USED FOR UNKNOWN INDICATION
     Dosage: 81 MG, UID/QD
     Route: 065
  20. COLACE [Concomitant]
     Indication: PRODUCT USED FOR UNKNOWN INDICATION
     Dosage: 100 MG, BID
     Route: 048
  21. PROGRAF [Suspect]
     Dosage: 3 MG IN AM, 2 MG IN PM
     Route: 048
  22. MUSCLE RELAXANTS [Suspect]
     Indication: NECK PAIN
     Dosage: UNK
     Route: 065
  23. SERTRALINE [Concomitant]
     Indication: PRODUCT USED FOR UNKNOWN INDICATION
     Dosage: 150 MG, UID/QD
     Route: 065
  24. PRODASTATINE SODIUM [Concomitant]
     Indication: PRODUCT USED FOR UNKNOWN INDICATION
     Dosage: 40 MG, UID/QD
     Route: 065
  25. MAGNESIUM OXIDE [Concomitant]
     Indication: PRODUCT USED FOR UNKNOWN INDICATION
     Dosage: 400 MG, BID
     Route: 048

REACTIONS (23)
  - ATRIOVENTRICULAR BLOCK SECOND DEGREE [None]
  - ACUTE ABDOMEN [None]
  - MYCOBACTERIUM AVIUM COMPLEX INFECTION [None]
  - DRUG LEVEL BELOW THERAPEUTIC [None]
  - RENAL MASS [None]
  - NECK PAIN [None]
  - VENTRICULAR FIBRILLATION [None]
  - SEROMA [None]
  - CARDIOGENIC SHOCK [None]
  - BRONCHOPULMONARY ASPERGILLOSIS [None]
  - URINARY TRACT INFECTION ENTEROCOCCAL [None]
  - HYPOTENSION [None]
  - GOUT [None]
  - PULSELESS ELECTRICAL ACTIVITY [None]
  - ACIDOSIS [None]
  - VENTRICULAR TACHYCARDIA [None]
  - RENAL FAILURE CHRONIC [None]
  - MENTAL STATUS CHANGES [None]
  - SEPSIS [None]
  - ADRENAL INSUFFICIENCY [None]
  - DRUG INEFFECTIVE [None]
  - DIABETES MELLITUS [None]
  - HEART TRANSPLANT REJECTION [None]
